FAERS Safety Report 10371398 (Version 1)
Quarter: 2014Q3

REPORT INFORMATION
  Report Type: Spontaneous
  Country: US (occurrence: US)
  Receive Date: 20140808
  Receipt Date: 20140808
  Transmission Date: 20150326
  Serious: Yes (Hospitalization, Other)
  Sender: FDA-Public Use
  Company Number: US-AMGEN-USASP2014059622

PATIENT
  Age: 45 Year
  Sex: Female

DRUGS (1)
  1. ENBREL [Suspect]
     Active Substance: ETANERCEPT
     Indication: PSORIATIC ARTHROPATHY
     Dosage: 50 MG, QWK
     Route: 065
     Dates: start: 201311, end: 20140711

REACTIONS (9)
  - Dysphonia [Not Recovered/Not Resolved]
  - Hypertension [Recovered/Resolved]
  - Dyspnoea exertional [Recovered/Resolved]
  - Dysphagia [Recovered/Resolved]
  - Walking aid user [Not Recovered/Not Resolved]
  - Chest pain [Recovered/Resolved]
  - Hypoaesthesia [Not Recovered/Not Resolved]
  - Hypotension [Recovered/Resolved]
  - Paraesthesia [Not Recovered/Not Resolved]

NARRATIVE: CASE EVENT DATE: 2014
